FAERS Safety Report 23152799 (Version 1)
Quarter: 2023Q4

REPORT INFORMATION
  Report Type: Report from Study
  Country: GB (occurrence: GB)
  Receive Date: 20231107
  Receipt Date: 20231107
  Transmission Date: 20240110
  Serious: Yes (Other)
  Sender: FDA-Public Use
  Company Number: GB-ABBVIE-5477578

PATIENT
  Age: 59 Year
  Sex: Male

DRUGS (1)
  1. BOTOX [Suspect]
     Active Substance: ONABOTULINUMTOXINA
     Indication: Vocal cord dysfunction
     Dosage: TIME INTERVAL: AS NECESSARY
     Route: 065

REACTIONS (6)
  - Suicidal ideation [Unknown]
  - Syncope [Unknown]
  - Laryngospasm [Unknown]
  - Drug ineffective [Unknown]
  - Spasmodic dysphonia [Unknown]
  - Off label use [Unknown]
